FAERS Safety Report 6530312 (Version 10)
Quarter: 2016Q3

REPORT INFORMATION
  Report Type: Spontaneous
  Country: US (occurrence: US)
  Receive Date: 20080118
  Receipt Date: 20160824
  Transmission Date: 20161109
  Serious: Yes (Hospitalization, Other)
  Sender: FDA-Public Use
  Company Number: US-ASTRAZENECA-2008UW00867

PATIENT
  Age: 57 Year
  Sex: Male
  Weight: 75.8 kg

DRUGS (47)
  1. NEXIUM [Suspect]
     Active Substance: ESOMEPRAZOLE MAGNESIUM
     Indication: HYPERCHLORHYDRIA
     Route: 048
     Dates: start: 1999
  2. ZINC [Concomitant]
     Active Substance: ZINC\ZINC CHLORIDE
  3. IMDUR [Concomitant]
     Active Substance: ISOSORBIDE MONONITRATE
     Indication: MYOCARDIAL INFARCTION
     Dates: start: 201504
  4. LIPITOR [Concomitant]
     Active Substance: ATORVASTATIN CALCIUM
     Indication: ANGIOPATHY
     Dates: start: 201504
  5. FLINSTOPNE MULTIVITAMINS [Concomitant]
     Dosage: 1 DAILY
  6. NEXIUM [Suspect]
     Active Substance: ESOMEPRAZOLE MAGNESIUM
     Indication: THROAT IRRITATION
     Route: 048
     Dates: start: 1999
  7. BRILINTA [Suspect]
     Active Substance: TICAGRELOR
     Dosage: 60.0MG UNKNOWN
     Route: 048
     Dates: start: 20160506
  8. ASPIRIN. [Concomitant]
     Active Substance: ASPIRIN
     Indication: ANTICOAGULANT THERAPY
  9. TAMSULOSIN [Concomitant]
     Active Substance: TAMSULOSIN
     Indication: PROSTATIC DISORDER
  10. FISH OIL [Concomitant]
     Active Substance: FISH OIL
  11. NEXIUM [Suspect]
     Active Substance: ESOMEPRAZOLE MAGNESIUM
     Indication: DYSPHAGIA
     Route: 048
     Dates: start: 1999
  12. NEXIUM [Suspect]
     Active Substance: ESOMEPRAZOLE MAGNESIUM
     Indication: GASTRIC ULCER
     Route: 048
     Dates: start: 1999
  13. NEXIUM [Suspect]
     Active Substance: ESOMEPRAZOLE MAGNESIUM
     Indication: DUODENAL ULCER
     Route: 048
     Dates: start: 1999
  14. NEXIUM 24HR [Suspect]
     Active Substance: ESOMEPRAZOLE MAGNESIUM
     Indication: SCLERODERMA
     Route: 048
     Dates: start: 2014
  15. PRILOSEC [Suspect]
     Active Substance: OMEPRAZOLE MAGNESIUM
     Indication: HIATUS HERNIA
     Route: 048
     Dates: start: 1997
  16. LISINOPRIL. [Suspect]
     Active Substance: LISINOPRIL
     Indication: RENAL DISORDER
     Route: 048
     Dates: start: 2012
  17. METOPROLOL SUCCINATE. [Suspect]
     Active Substance: METOPROLOL SUCCINATE
     Indication: HYPERTENSION
     Route: 048
  18. LORAZEPAM. [Concomitant]
     Active Substance: LORAZEPAM
     Indication: ANXIETY
     Route: 048
     Dates: start: 201504
  19. NEXIUM [Suspect]
     Active Substance: ESOMEPRAZOLE MAGNESIUM
     Indication: SCLERODERMA
     Route: 048
     Dates: start: 1999
  20. NEXIUM [Suspect]
     Active Substance: ESOMEPRAZOLE MAGNESIUM
     Indication: HIATUS HERNIA
     Route: 048
     Dates: start: 1999
  21. PRILOSEC OTC [Suspect]
     Active Substance: OMEPRAZOLE MAGNESIUM
     Indication: DYSPHAGIA
     Route: 048
  22. ASPIRIN. [Concomitant]
     Active Substance: ASPIRIN
     Indication: PULMONARY EMBOLISM
     Dates: start: 1990
  23. ASPIRIN. [Concomitant]
     Active Substance: ASPIRIN
     Indication: PULMONARY EMBOLISM
  24. VITAMIN D [Concomitant]
     Active Substance: CHOLECALCIFEROL
  25. IMURAN [Concomitant]
     Active Substance: AZATHIOPRINE
     Indication: IMMUNE SYSTEM DISORDER
     Dates: start: 2012
  26. SODIUM BICARBONATE. [Concomitant]
     Active Substance: SODIUM BICARBONATE
     Indication: RENAL DISORDER
     Dates: start: 2012
  27. NEXIUM [Suspect]
     Active Substance: ESOMEPRAZOLE MAGNESIUM
     Indication: GASTROOESOPHAGEAL REFLUX DISEASE
     Route: 048
     Dates: start: 1999
  28. METOPROLOL SUCCINATE. [Suspect]
     Active Substance: METOPROLOL SUCCINATE
     Indication: HYPERTENSION
     Route: 048
     Dates: start: 201504
  29. PHENOBARB [Suspect]
     Active Substance: PHENOBARBITAL SODIUM
     Indication: SEIZURE
     Dosage: 132.4MG UNKNOWN
     Route: 065
  30. ASPIRIN. [Concomitant]
     Active Substance: ASPIRIN
     Indication: ANTICOAGULANT THERAPY
     Dates: start: 1990
  31. PREDNISONE. [Concomitant]
     Active Substance: PREDNISONE
     Indication: URINARY TRACT INFLAMMATION
     Dates: start: 2012
  32. NEXIUM [Suspect]
     Active Substance: ESOMEPRAZOLE MAGNESIUM
     Indication: GASTROOESOPHAGEAL REFLUX DISEASE
     Route: 048
     Dates: start: 1999
  33. PRILOSEC [Suspect]
     Active Substance: OMEPRAZOLE MAGNESIUM
     Indication: DYSPHAGIA
     Route: 048
     Dates: start: 1997
  34. METOPROLOL SUCCINATE. [Suspect]
     Active Substance: METOPROLOL SUCCINATE
     Indication: HYPERTENSION
     Route: 048
     Dates: start: 2015
  35. METOPROLOL SUCCINATE. [Suspect]
     Active Substance: METOPROLOL SUCCINATE
     Indication: HYPERTENSION
     Route: 048
  36. FLUNISOLIDE. [Concomitant]
     Active Substance: FLUNISOLIDE
     Indication: MULTIPLE ALLERGIES
     Dosage: PRN
     Route: 045
  37. SIMVASTIN [Concomitant]
     Active Substance: SIMVASTATIN
     Indication: BLOOD CHOLESTEROL INCREASED
  38. INURINE [Concomitant]
     Indication: RENAL DISORDER
     Dosage: DAILY
  39. PARSLEY TEA [Concomitant]
     Dosage: AT NIGHT
  40. NITROGLYCERIN. [Concomitant]
     Active Substance: NITROGLYCERIN
     Indication: CHEST PAIN
     Dosage: 0.4 MG UP TO 3 AS NEEDED
     Route: 060
  41. NEXIUM 24HR [Suspect]
     Active Substance: ESOMEPRAZOLE MAGNESIUM
     Indication: DYSPHAGIA
     Route: 048
     Dates: start: 2014
  42. PRILOSEC [Suspect]
     Active Substance: OMEPRAZOLE MAGNESIUM
     Indication: GASTROOESOPHAGEAL REFLUX DISEASE
     Route: 048
     Dates: start: 1997
  43. PHENOBARB [Suspect]
     Active Substance: PHENOBARBITAL SODIUM
     Indication: SEIZURE
     Route: 065
  44. AMLODIPINE [Concomitant]
     Active Substance: AMLODIPINE BESYLATE
     Indication: MORPHOEA
     Dosage: DAILY
  45. TAMSULOSIN [Concomitant]
     Active Substance: TAMSULOSIN
     Indication: PROSTATOMEGALY
  46. IMDUR [Concomitant]
     Active Substance: ISOSORBIDE MONONITRATE
     Indication: MYOCARDIAL INFARCTION
     Dosage: 120MG IN AM AND 20 MG AT NIGHT,
  47. CALCITROL [Concomitant]
     Active Substance: CALCITRIOL
     Indication: RENAL DISORDER
     Route: 048
     Dates: start: 2012

REACTIONS (27)
  - Renal impairment [Unknown]
  - Dysphagia [Unknown]
  - Off label use [Unknown]
  - Coronary artery disease [Unknown]
  - Chest discomfort [Unknown]
  - Hypertension [Unknown]
  - Drug dose omission [Unknown]
  - Hiatus hernia [Unknown]
  - Adverse event [Unknown]
  - Vomiting [Unknown]
  - Drug ineffective [Unknown]
  - Myocardial infarction [Unknown]
  - Choking [Unknown]
  - Pain [Not Recovered/Not Resolved]
  - Diarrhoea [Unknown]
  - Tubulointerstitial nephritis [Unknown]
  - Coronary artery occlusion [Unknown]
  - Retching [Unknown]
  - Intentional product misuse [Unknown]
  - Dyspnoea [Unknown]
  - Product use issue [Unknown]
  - Seizure [Recovered/Resolved]
  - Blood cholesterol increased [Unknown]
  - Flatulence [Unknown]
  - Haemoglobin decreased [Unknown]
  - Chronic kidney disease [Unknown]
  - Prostatomegaly [Unknown]

NARRATIVE: CASE EVENT DATE: 2012
